FAERS Safety Report 25418231 (Version 1)
Quarter: 2025Q2

REPORT INFORMATION
  Report Type: Spontaneous
  Country: KR (occurrence: KR)
  Receive Date: 20250610
  Receipt Date: 20250610
  Transmission Date: 20250716
  Serious: Yes (Other)
  Sender: PFIZER
  Company Number: KR-PFIZER INC-202500115149

PATIENT
  Age: 36 Year
  Sex: Female

DRUGS (5)
  1. ALDACTONE [Suspect]
     Active Substance: SPIRONOLACTONE
     Indication: Rhinitis allergic
     Dosage: 1 DF, 2X/DAY
     Dates: start: 20240924
  2. METHYLPREDNISOLONE [Suspect]
     Active Substance: METHYLPREDNISOLONE
     Indication: Rhinitis allergic
     Dosage: 2 DF, 2X/DAY
     Dates: start: 20240924
  3. CILOSTAZOL [Suspect]
     Active Substance: CILOSTAZOL
     Indication: Rhinitis allergic
     Dosage: 1 DF, 1X/DAY
     Dates: start: 20240924
  4. BETAHISTINE HYDROCHLORIDE [Suspect]
     Active Substance: BETAHISTINE HYDROCHLORIDE
     Indication: Rhinitis allergic
     Dosage: 1 DF, 1X/DAY
     Dates: start: 20240924
  5. REBAMIPIDE [Suspect]
     Active Substance: REBAMIPIDE
     Indication: Rhinitis allergic
     Dosage: 1 DF, 2X/DAY
     Dates: start: 20240924

REACTIONS (2)
  - Angioedema [Unknown]
  - Off label use [Unknown]

NARRATIVE: CASE EVENT DATE: 20240924
